FAERS Safety Report 7030125-6 (Version None)
Quarter: 2010Q4

REPORT INFORMATION
  Report Type: 
  Country: None (occurrence: None)
  Receive Date: 20101006
  Receipt Date: 20101001
  Transmission Date: 20110411
  Serious: Yes (Hospitalization, Other)
  Sender: FDA-Public Use
  Company Number: AU-PFIZER INC-2010115006

PATIENT
  Age: 58 Year
  Sex: Female
  Weight: 70 kg

DRUGS (4)
  1. ALDACTONE [Suspect]
     Indication: FLUID RETENTION
     Dosage: 12.5 MG, 1X/DAY
     Route: 048
     Dates: start: 20100201, end: 20100908
  2. CRESTOR [Concomitant]
     Dosage: 10 MG, UNK
  3. ZOLOFT [Concomitant]
     Dosage: 100 MG, UNK
  4. STRONTIUM RANELATE [Concomitant]

REACTIONS (5)
  - DIZZINESS [None]
  - FALL [None]
  - HYPOTENSION [None]
  - LOSS OF CONSCIOUSNESS [None]
  - VIRAL INFECTION [None]
